FAERS Safety Report 4759425-7 (Version None)
Quarter: 2005Q3

REPORT INFORMATION
  Report Type: 
  Country: None (occurrence: None)
  Receive Date: 20050831
  Receipt Date: 20050803
  Transmission Date: 20060218
  Serious: Yes (Hospitalization)
  Sender: FDA-Public Use
  Company Number: 200513119BCC

PATIENT
  Age: 73 Year
  Sex: Male
  Weight: 96.1626 kg

DRUGS (3)
  1. ALEVE [Suspect]
     Indication: ARTHRALGIA
     Dosage: 440 MG, PRN, ORAL
     Route: 048
     Dates: start: 20030101
  2. BUPROPION [Concomitant]
  3. COREG [Concomitant]

REACTIONS (1)
  - DEHYDRATION [None]
